FAERS Safety Report 15778623 (Version 2)
Quarter: 2019Q3

REPORT INFORMATION
  Report Type: Report from Study
  Country: US (occurrence: US)
  Receive Date: 20181231
  Receipt Date: 20190806
  Transmission Date: 20191004
  Serious: Yes (Hospitalization)
  Sender: FDA-Public Use
  Company Number: US-ACTELION-A-NJ2018-178847

PATIENT
  Age: 67 Year
  Sex: Female
  Weight: 116.55 kg

DRUGS (4)
  1. TRACLEER [Suspect]
     Active Substance: BOSENTAN
     Indication: PULMONARY ARTERIAL HYPERTENSION
     Dosage: 125 MG, BID
     Route: 048
  2. XARELTO [Concomitant]
     Active Substance: RIVAROXABAN
  3. UPTRAVI [Suspect]
     Active Substance: SELEXIPAG
     Indication: PULMONARY ARTERIAL HYPERTENSION
     Dosage: 800 MCG, BID
     Route: 048
  4. UPTRAVI [Suspect]
     Active Substance: SELEXIPAG
     Dosage: 1000 MCG BID
     Route: 048

REACTIONS (13)
  - Vomiting [Unknown]
  - Weight decreased [Unknown]
  - Blood glucose decreased [Unknown]
  - Diarrhoea [Unknown]
  - Fluid retention [Unknown]
  - Flushing [Unknown]
  - Dyspnoea [Unknown]
  - Blood potassium decreased [Unknown]
  - Decreased appetite [Unknown]
  - Gastric banding [Unknown]
  - Tremor [Unknown]
  - Headache [Unknown]
  - Nausea [Unknown]

NARRATIVE: CASE EVENT DATE: 20190722
